FAERS Safety Report 11391611 (Version 2)
Quarter: 2019Q2

REPORT INFORMATION
  Report Type: Spontaneous
  Country: GR (occurrence: GR)
  Receive Date: 20150818
  Receipt Date: 20190514
  Transmission Date: 20190711
  Serious: Yes (Life-Threatening, Hospitalization)
  Sender: FDA-Public Use
  Company Number: GR-PFIZER INC-2015259447

PATIENT
  Age: 64 Year
  Sex: Male
  Weight: 77 kg

DRUGS (1)
  1. SUNITINIB MALATE. [Suspect]
     Active Substance: SUNITINIB MALATE
     Indication: PANCREATIC NEUROENDOCRINE TUMOUR
     Dosage: 37.5 MG, DAILY

REACTIONS (1)
  - Hypoglycaemia [Recovered/Resolved]
